FAERS Safety Report 5009832-2 (Version None)
Quarter: 2006Q2

REPORT INFORMATION
  Report Type: 
  Country: None (occurrence: None)
  Receive Date: 20060523
  Receipt Date: 20060523
  Transmission Date: 20061013
  Serious: Yes (Hospitalization)
  Sender: FDA-Public Use
  Company Number: None

PATIENT
  Age: 28 Year
  Sex: Female
  Weight: 87 kg

DRUGS (1)
  1. LAMICTAL [Suspect]
     Indication: CONVULSION
     Dosage: 150MG  BID

REACTIONS (7)
  - CONVERSION DISORDER [None]
  - CONVULSION [None]
  - DRUG ERUPTION [None]
  - ERYTHEMA MULTIFORME [None]
  - PAIN [None]
  - STEVENS-JOHNSON SYNDROME [None]
  - TREMOR [None]
